FAERS Safety Report 5758959-6 (Version None)
Quarter: 2008Q2

REPORT INFORMATION
  Report Type: 
  Country: None (occurrence: None)
  Receive Date: 20080604
  Receipt Date: 20080526
  Transmission Date: 20081010
  Serious: Yes (Death)
  Sender: FDA-Public Use
  Company Number: AU-SANOFI-SYNTHELABO-A01200805388

PATIENT
  Sex: Male

DRUGS (9)
  1. TRITACE [Concomitant]
     Indication: CARDIAC FAILURE CONGESTIVE
     Route: 065
  2. PANTOPRAZOLE SODIUM [Concomitant]
     Indication: PROPHYLAXIS
     Route: 065
  3. PRAVACHOL [Concomitant]
     Indication: HYPERCHOLESTEROLAEMIA
     Route: 065
  4. FOSAMAX PLUS D [Concomitant]
     Indication: OSTEOPOROSIS
     Route: 065
  5. DILATREND [Concomitant]
     Indication: CARDIAC FAILURE CONGESTIVE
     Route: 065
  6. UREMIDE [Concomitant]
     Indication: CARDIAC FAILURE CONGESTIVE
     Route: 065
  7. ZANIDIP [Concomitant]
     Indication: HYPERTENSION
     Route: 065
  8. PLAVIX [Suspect]
     Indication: ACUTE MYOCARDIAL INFARCTION
     Dosage: UNK
     Route: 048
     Dates: start: 20050201, end: 20071112
  9. PLAVIX [Suspect]
     Indication: MYOCARDIAL ISCHAEMIA
     Dosage: UNK
     Route: 048
     Dates: start: 20050201, end: 20071112

REACTIONS (1)
  - ACUTE MYOCARDIAL INFARCTION [None]
